FAERS Safety Report 9844820 (Version 3)
Quarter: 2014Q2

REPORT INFORMATION
  Report Type: Spontaneous
  Country: GB (occurrence: None)
  Receive Date: 20140122
  Receipt Date: 20140523
  Transmission Date: 20141212
  Serious: Yes (Other)
  Sender: FDA-Public Use
  Company Number: AUR-APL-2014-00371

PATIENT
  Age: 69 Year
  Sex: Female

DRUGS (4)
  1. SIMVASTATIN [Suspect]
     Indication: HYPERCHOLESTEROLAEMIA
     Dosage: 20 MG, 1 D
     Dates: start: 20120601, end: 201209
  2. COD LIVER OIL ( COD-LIVER OIL) [Concomitant]
  3. GARLIC ( ALLIUM SATIVUM) [Concomitant]
  4. MULTIVITAMIN (VIGRAN) (ERGOCALCIFEOL, ASCORBIC ACID, PYRIDOXINE HYDROCHLORIDE, THIAMINE HYDROCHLORIDE, RETINOL, RIBOFLAVIN, NICOTINAMIDE, CALCIUM PANTHOTHENATE) [Concomitant]

REACTIONS (5)
  - Alopecia [None]
  - Muscle atrophy [None]
  - Palpitations [None]
  - Breast atrophy [None]
  - Weight decreased [None]
